FAERS Safety Report 19621786 (Version 5)
Quarter: 2021Q4

REPORT INFORMATION
  Report Type: Report from Study
  Country: US (occurrence: US)
  Receive Date: 20210728
  Receipt Date: 20211117
  Transmission Date: 20220304
  Serious: Yes (Hospitalization, Other)
  Sender: FDA-Public Use
  Company Number: NVSC2021US160288

PATIENT
  Age: 83 Year
  Sex: Female
  Weight: 41.7 kg

DRUGS (2)
  1. TREPROSTINIL [Suspect]
     Active Substance: TREPROSTINIL
     Indication: Pulmonary arterial hypertension
     Dosage: 120 NG/KG/MIN, CONT
     Route: 042
     Dates: start: 20170117
  2. TREPROSTINIL [Suspect]
     Active Substance: TREPROSTINIL
     Dosage: 120 NG/KG/MIN, CONT
     Route: 042
     Dates: start: 20210324

REACTIONS (4)
  - Gastrointestinal haemorrhage [Recovered/Resolved]
  - Colon cancer [Unknown]
  - Gastritis [Unknown]
  - Injection site pruritus [Unknown]

NARRATIVE: CASE EVENT DATE: 20210924
